FAERS Safety Report 18009248 (Version 1)
Quarter: 2020Q3

REPORT INFORMATION
  Report Type: Spontaneous
  Country: US (occurrence: US)
  Receive Date: 20200710
  Receipt Date: 20200710
  Transmission Date: 20201103
  Serious: Yes (Other)
  Sender: FDA-Public Use
  Company Number: US-PURDUE-USA-2020-0156461

PATIENT
  Sex: Female

DRUGS (24)
  1. BETADINE SOLUTION SWAB AIDS [Suspect]
     Active Substance: POVIDONE-IODINE
     Indication: PRODUCT USED FOR UNKNOWN INDICATION
     Dosage: UNK
     Route: 061
     Dates: start: 2014, end: 2019
  2. FLUTICASONE. [Suspect]
     Active Substance: FLUTICASONE
     Indication: PRODUCT USED FOR UNKNOWN INDICATION
     Dosage: 50 MCG, UNK
     Route: 065
  3. PREDNISONE. [Suspect]
     Active Substance: PREDNISONE
     Indication: PRODUCT USED FOR UNKNOWN INDICATION
     Dosage: 20 MG, DAILY
     Route: 065
  4. ALEVE [Suspect]
     Active Substance: NAPROXEN SODIUM
     Indication: SINUSITIS
     Dosage: 220 MG, Q4H
     Route: 065
  5. OXYCONTIN [Suspect]
     Active Substance: OXYCODONE HYDROCHLORIDE
     Dosage: 40 UNK, UNK
  6. MORPHINE SULFATE (SIMILAR TO NDA 19?516) [Suspect]
     Active Substance: MORPHINE SULFATE
     Indication: HAEMORRHAGE
     Dosage: UNK
     Route: 048
     Dates: start: 20140913
  7. MORPHINE SULFATE (SIMILAR TO NDA 19?516) [Suspect]
     Active Substance: MORPHINE SULFATE
     Indication: PAIN
     Dosage: UNK
     Route: 048
     Dates: start: 20170119
  8. HYDROMORPHONE HCL ORAL SOLUTION [Suspect]
     Active Substance: HYDROMORPHONE HYDROCHLORIDE
     Indication: PRODUCT USED FOR UNKNOWN INDICATION
     Dosage: UNK
     Route: 048
     Dates: start: 201409
  9. COLACE [Suspect]
     Active Substance: DOCUSATE SODIUM
     Indication: CONSTIPATION
     Dosage: 100 MG, PRN
     Route: 065
     Dates: start: 2014
  10. DILAUDID [Suspect]
     Active Substance: HYDROMORPHONE HYDROCHLORIDE
     Indication: PRODUCT USED FOR UNKNOWN INDICATION
     Dosage: 4 MG/ 1 ML
     Route: 048
  11. HYSINGLA ER [Suspect]
     Active Substance: HYDROCODONE BITARTRATE
     Indication: PAIN
     Dosage: 30 MG, UNK
     Route: 048
  12. NACL [Suspect]
     Active Substance: SODIUM CHLORIDE
     Indication: PRODUCT USED FOR UNKNOWN INDICATION
     Dosage: 0.9 %, 1000 ML, 100 ML/H
     Route: 065
     Dates: start: 20140913
  13. SLOW?MAG [Suspect]
     Active Substance: MAGNESIUM CHLORIDE
     Indication: FATIGUE
  14. SLOW?MAG [Suspect]
     Active Substance: MAGNESIUM CHLORIDE
     Indication: DIARRHOEA
     Dosage: 238 MG, UNK
     Route: 048
     Dates: start: 2001
  15. INTERMEZZO [Suspect]
     Active Substance: ZOLPIDEM TARTRATE
     Indication: INSOMNIA
     Dosage: UNK
     Route: 060
     Dates: start: 201211
  16. OXYCONTIN [Suspect]
     Active Substance: OXYCODONE HYDROCHLORIDE
     Indication: PAIN
     Dosage: 30 MG, Q4H PRN
     Route: 048
  17. SLOW?MAG [Suspect]
     Active Substance: MAGNESIUM CHLORIDE
     Indication: DEHYDRATION
  18. MSIR [Suspect]
     Active Substance: MORPHINE SULFATE
     Indication: SURGERY
     Dosage: 0.5 MG/ML
     Route: 065
     Dates: start: 20170425
  19. IBUPROFEN. [Suspect]
     Active Substance: IBUPROFEN
     Indication: PRODUCT USED FOR UNKNOWN INDICATION
     Dosage: 200 MG, PRN
     Route: 065
     Dates: start: 20170425
  20. FERROUS SULFATE. [Suspect]
     Active Substance: FERROUS SULFATE
     Indication: PRODUCT USED FOR UNKNOWN INDICATION
     Dosage: 325 MG, DAILY WITH BREAKFAST
     Route: 065
     Dates: start: 20170425
  21. OXYFAST [Suspect]
     Active Substance: OXYCODONE
     Indication: PRODUCT USED FOR UNKNOWN INDICATION
     Route: 048
  22. MORPHINE SULFATE (SIMILAR TO NDA 19?516) [Suspect]
     Active Substance: MORPHINE SULFATE
     Indication: EYE OPERATION
  23. SLOW?MAG [Suspect]
     Active Substance: MAGNESIUM CHLORIDE
     Indication: MUSCLE SPASMS
  24. PROMETHAZINE [Suspect]
     Active Substance: PROMETHAZINE HYDROCHLORIDE
     Indication: PRODUCT USED FOR UNKNOWN INDICATION
     Dosage: 25 MG, UNK
     Route: 065
     Dates: start: 20140913

REACTIONS (22)
  - Psychiatric symptom [Unknown]
  - Unevaluable event [Unknown]
  - Pelvic mass [Unknown]
  - Anxiety [Unknown]
  - Rash [Unknown]
  - Haemorrhage [Unknown]
  - Arthritis [Unknown]
  - Drug dependence [Unknown]
  - Depression [Unknown]
  - Psychotic disorder [Unknown]
  - Decreased appetite [Unknown]
  - Headache [Unknown]
  - Ovarian cyst [Unknown]
  - Abdominal wall oedema [Unknown]
  - Pituitary tumour benign [Unknown]
  - Myalgia [Unknown]
  - Dysarthria [Unknown]
  - Swelling [Unknown]
  - Ocular neoplasm [Recovered/Resolved]
  - Hallucination [Unknown]
  - Pain [Unknown]
  - Dysfunctional uterine bleeding [Unknown]

NARRATIVE: CASE EVENT DATE: 2001
